FAERS Safety Report 6201343-1 (Version None)
Quarter: 2009Q2

REPORT INFORMATION
  Report Type: 
  Country: None (occurrence: None)
  Receive Date: 20090526
  Receipt Date: 20090518
  Transmission Date: 20091009
  Serious: Yes (Other)
  Sender: FDA-Public Use
  Company Number: PHEH2008US03144

PATIENT
  Sex: Female

DRUGS (1)
  1. AREDIA [Suspect]
     Dosage: UNK
     Dates: end: 20070401

REACTIONS (15)
  - ANXIETY [None]
  - DEBRIDEMENT [None]
  - EMOTIONAL DISTRESS [None]
  - EMPYEMA [None]
  - ENDODONTIC PROCEDURE [None]
  - FISTULA REPAIR [None]
  - INFECTION [None]
  - INFLAMMATION [None]
  - INJURY [None]
  - ORAL DISORDER [None]
  - OSTEONECROSIS [None]
  - PAIN [None]
  - PHYSICAL DISABILITY [None]
  - PLEURISY [None]
  - SCAR [None]
